FAERS Safety Report 12405139 (Version 5)
Quarter: 2019Q1

REPORT INFORMATION
  Report Type: Spontaneous
  Country: US (occurrence: US)
  Receive Date: 20160525
  Receipt Date: 20190327
  Transmission Date: 20190417
  Serious: Yes (Death, Hospitalization)
  Sender: FDA-Public Use
  Company Number: US-ACTELION-A-US2016-136704

PATIENT
  Age: 52 Year
  Sex: Male

DRUGS (5)
  1. GLEEVEC [Suspect]
     Active Substance: IMATINIB MESYLATE
     Indication: PRODUCT USED FOR UNKNOWN INDICATION
     Route: 065
  2. CORDARONE [Concomitant]
     Active Substance: AMIODARONE HYDROCHLORIDE
  3. DIOVAN [Concomitant]
     Active Substance: VALSARTAN
  4. OPSUMIT [Suspect]
     Active Substance: MACITENTAN
     Indication: PULMONARY ARTERIAL HYPERTENSION
     Dosage: 10 MG, QD
     Route: 048
     Dates: start: 20150304, end: 20190305
  5. LASIX [Concomitant]
     Active Substance: FUROSEMIDE

REACTIONS (9)
  - Peripheral swelling [Recovered/Resolved]
  - Headache [Recovered/Resolved]
  - Neoplasm malignant [Fatal]
  - Dysuria [Unknown]
  - Pain [Recovered/Resolved]
  - Swelling face [Recovered/Resolved]
  - Cardiac pacemaker insertion [Recovered/Resolved]
  - Heart rate increased [Recovered/Resolved]
  - Back pain [Not Recovered/Not Resolved]

NARRATIVE: CASE EVENT DATE: 201605
